FAERS Safety Report 17892779 (Version 1)
Quarter: 2020Q2

REPORT INFORMATION
  Report Type: Spontaneous
  Country: DE (occurrence: DE)
  Receive Date: 20200613
  Receipt Date: 20200613
  Transmission Date: 20200714
  Serious: Yes (Hospitalization)
  Sender: FDA-Public Use
  Company Number: DE-ASTRAZENECA-2020SE75296

PATIENT
  Age: 78 Year
  Sex: Female

DRUGS (8)
  1. PIPAMPERON [Suspect]
     Active Substance: PIPAMPERONE HYDROCHLORIDE
     Dosage: 40 MG, 2X, TABLETTEN 40 MG, TWICE, TABLETS
     Route: 048
  2. RISPERIDON [Suspect]
     Active Substance: RISPERIDONE
     Dosage: 0.5 MG, 1-1-1-0, TABLETTEN 0.5 MG, 1-1-1-0, TABLETS
     Route: 048
  3. PARACETAMOL [Concomitant]
     Active Substance: ACETAMINOPHEN
     Dosage: 500 MG, 8X, TABLETTEN 500 MG, 8X, TABLETS
     Route: 048
  4. TORASEMID [Concomitant]
     Active Substance: TORSEMIDE
     Dosage: 10 MG, 0.5-0-0-0, TABLETTEN 10 MG, 0.5-0-0-0, TABLETS
     Route: 048
  5. ELIQUIS [Suspect]
     Active Substance: APIXABAN
     Dosage: 2.5 MG, 1-0-1-0, TABLETTEN 2.5 MG, 1-0-1-0, TABLETS
     Route: 048
  6. METAMIZOL [Concomitant]
     Active Substance: METAMIZOLE SODIUM
     Dosage: 500 MG, 3X, TABLETTEN 500 MG, 3X, TABLETS
     Route: 048
  7. QUETIAPIN [Suspect]
     Active Substance: QUETIAPINE
     Dosage: 50 MG, 1-1-1-0, TABLETTEN 50 MG, 1-1-1-0, TABLETS
     Route: 048
  8. LORAZEPAM. [Suspect]
     Active Substance: LORAZEPAM
     Dosage: 2.5 MG, 1X, TABLETTEN 2.5 MG, ONCE, TABLETS
     Route: 048

REACTIONS (5)
  - General physical health deterioration [Unknown]
  - Labelled drug-drug interaction medication error [Unknown]
  - Fall [Unknown]
  - Fatigue [Unknown]
  - Dizziness [Unknown]
